FAERS Safety Report 23922701 (Version 2)
Quarter: 2024Q2

REPORT INFORMATION
  Report Type: Spontaneous
  Country: US (occurrence: US)
  Receive Date: 20240531
  Receipt Date: 20240604
  Transmission Date: 20240716
  Serious: Yes (Life-Threatening, Hospitalization, Other)
  Sender: FDA-Public Use
  Company Number: US-AUROBINDO-AUR-APL-2024-026077

PATIENT
  Age: 39 Year
  Sex: Male

DRUGS (1)
  1. AMLODIPINE [Suspect]
     Active Substance: AMLODIPINE BESYLATE
     Indication: Hypertension
     Dosage: 10 MILLIGRAM, FOUR TIMES/DAY
     Route: 065

REACTIONS (11)
  - Capillary leak syndrome [Recovered/Resolved]
  - Organ failure [Recovered/Resolved]
  - Renal tubular necrosis [Recovered/Resolved]
  - Acute respiratory distress syndrome [Recovered/Resolved]
  - Distributive shock [Recovered/Resolved]
  - Lactic acidosis [Recovered/Resolved]
  - Acute kidney injury [Recovered/Resolved]
  - Acute respiratory failure [Recovered/Resolved]
  - Toxicity to various agents [Unknown]
  - Overdose [Unknown]
  - Intentional overdose [Recovered/Resolved]
